FAERS Safety Report 25964782 (Version 1)
Quarter: 2025Q4

REPORT INFORMATION
  Report Type: Report from Study
  Country: US (occurrence: US)
  Receive Date: 20251027
  Receipt Date: 20251027
  Transmission Date: 20260117
  Serious: Yes (Other)
  Sender: ABBVIE
  Company Number: US-ABBVIE-6515839

PATIENT
  Age: 77 Year
  Sex: Female

DRUGS (1)
  1. ARMOUR THYROID [Suspect]
     Active Substance: THYROID, PORCINE
     Indication: Rotator cuff repair
     Route: 048

REACTIONS (1)
  - Rotator cuff repair [Recovered/Resolved]

NARRATIVE: CASE EVENT DATE: 20250901
